FAERS Safety Report 7712552-4 (Version None)
Quarter: 2011Q3

REPORT INFORMATION
  Report Type: 
  Country: None (occurrence: None)
  Receive Date: 20110822
  Receipt Date: 20110811
  Transmission Date: 20111222
  Serious: Yes (Hospitalization, Other)
  Sender: FDA-Public Use
  Company Number: DKLU1068401

PATIENT
  Age: 27 Year
  Sex: Female
  Weight: 60.782 kg

DRUGS (11)
  1. SABRIL [Suspect]
     Indication: CONVULSION
     Dosage: 1.5 G GRAM(S), 2 IN 1 D, ORAL
     Route: 048
     Dates: start: 20110122, end: 20110525
  2. DOCUSATE SODIUM (DOCUSATE SODIUM) [Concomitant]
  3. DIASTAT [Concomitant]
  4. ATIVAN [Concomitant]
  5. CALCIUM CARBONATE [Concomitant]
  6. DIFFERIN [Concomitant]
  7. ZONISAMIDE [Concomitant]
  8. TOPIRAMATE [Concomitant]
  9. FRISIUM (CLOBAZAM) [Concomitant]
  10. LEXAPRO FILM-COATED TABLETS (ESCITALOPRAM-TABLETS) (ESCITALOPRAM) [Concomitant]
  11. OXCARBAZEPINE [Concomitant]

REACTIONS (2)
  - FALL [None]
  - CERVICAL VERTEBRAL FRACTURE [None]
